FAERS Safety Report 9548739 (Version 1)
Quarter: 2013Q2

REPORT INFORMATION
  Report Type: Spontaneous
  Country: US (occurrence: None)
  Receive Date: 20130627
  Receipt Date: 20130627
  Transmission Date: 20140414
  Serious: No
  Sender: FDA-Public Use
  Company Number: 1000043616

PATIENT
  Age: 70 Year
  Sex: Female

DRUGS (6)
  1. LINZESS [Suspect]
     Indication: CONSTIPATION
     Route: 048
  2. LINZESS [Suspect]
     Indication: IRRITABLE BOWEL SYNDROME
     Route: 048
  3. VICODIN (VICODIN) [Concomitant]
  4. SYNTHROID (LEVOTHYROXINE SODIUM) [Concomitant]
  5. ESTRADIOL (ESTRADIOL) [Concomitant]
  6. KLONOPIN (CLONAZEPAM) [Concomitant]

REACTIONS (4)
  - Abdominal distension [None]
  - Weight increased [None]
  - Headache [None]
  - Drug ineffective [None]
